FAERS Safety Report 4485608-X (Version None)
Quarter: 2004Q4

REPORT INFORMATION
  Report Type: 
  Country: None (occurrence: None)
  Receive Date: 20041026
  Receipt Date: 20041015
  Transmission Date: 20050328
  Serious: Yes (Disabling)
  Sender: FDA-Public Use
  Company Number: CH-JNJFOC-20041004318

PATIENT
  Sex: Female
  Weight: 49 kg

DRUGS (1)
  1. TOPIRMATE [Suspect]
     Indication: BIPOLAR DISORDER
     Route: 049

REACTIONS (1)
  - PANIC ATTACK [None]
